FAERS Safety Report 20817540 (Version 1)
Quarter: 2022Q2

REPORT INFORMATION
  Report Type: Spontaneous
  Country: US (occurrence: US)
  Receive Date: 20220512
  Receipt Date: 20220512
  Transmission Date: 20220720
  Serious: No
  Sender: FDA-Public Use
  Company Number: US-PFIZER INC-202101871980

PATIENT
  Age: 67 Year
  Sex: Male

DRUGS (1)
  1. NIVESTYM [Suspect]
     Active Substance: FILGRASTIM-AAFI
     Dosage: UNK, DAILY (480MCG/0.8 ML 1 SYRINGE DAILY M-F FOR A TOTAL OF 5 SYRINGE)

REACTIONS (2)
  - Product prescribing error [Unknown]
  - Red blood cell abnormality [Unknown]
